FAERS Safety Report 6152824-0 (Version None)
Quarter: 2009Q2

REPORT INFORMATION
  Report Type: 
  Country: None (occurrence: None)
  Receive Date: 20090413
  Receipt Date: 20090413
  Transmission Date: 20091009
  Serious: Yes (Other)
  Sender: FDA-Public Use
  Company Number: US-PFIZER INC-2009172892

PATIENT
  Sex: Female
  Weight: 53.523 kg

DRUGS (6)
  1. XALATAN [Suspect]
     Indication: GLAUCOMA
     Dosage: UNK
  2. XALATAN [Suspect]
     Indication: INTRAOCULAR PRESSURE TEST
  3. CENTRUM SILVER [Concomitant]
     Dosage: UNK
  4. LISINOPRIL [Concomitant]
     Dosage: UNK
  5. FUROSEMIDE [Concomitant]
     Dosage: UNK
  6. DRUG, UNSPECIFIED [Concomitant]
     Dosage: UNK

REACTIONS (2)
  - ARRHYTHMIA [None]
  - HYPERTENSION [None]
